FAERS Safety Report 18551699 (Version 2)
Quarter: 2021Q2

REPORT INFORMATION
  Report Type: Spontaneous
  Country: CZ (occurrence: CZ)
  Receive Date: 20201126
  Receipt Date: 20210510
  Transmission Date: 20210717
  Serious: Yes (Death)
  Sender: FDA-Public Use
  Company Number: CZ-ASTRAZENECA-2020SF55091

PATIENT
  Age: 17223 Day
  Sex: Female
  Weight: 78 kg

DRUGS (1)
  1. LYNPARZA [Suspect]
     Active Substance: OLAPARIB
     Indication: OVARIAN CANCER RECURRENT
     Route: 048
     Dates: start: 20200606, end: 20200723

REACTIONS (1)
  - Myelodysplastic syndrome [Fatal]
